FAERS Safety Report 14151759 (Version 1)
Quarter: 2017Q4

REPORT INFORMATION
  Report Type: Spontaneous
  Country: US (occurrence: None)
  Receive Date: 20171101
  Receipt Date: 20171101
  Transmission Date: 20180321
  Serious: Yes (Life-Threatening, Hospitalization)
  Sender: FDA-Public Use
  Company Number: None

PATIENT
  Age: 64 Year
  Sex: Male
  Weight: 87.82 kg

DRUGS (2)
  1. WARFARIN [Suspect]
     Active Substance: WARFARIN
     Indication: INTRACARDIAC THROMBUS
     Route: 048
     Dates: start: 20170316, end: 20170525
  2. WARFARIN [Suspect]
     Active Substance: WARFARIN
     Indication: PRODUCT USED FOR UNKNOWN INDICATION
     Route: 048
     Dates: start: 20170316, end: 20170525

REACTIONS (6)
  - Anaemia [None]
  - Gastrointestinal haemorrhage [None]
  - Nausea [None]
  - Bradycardia [None]
  - International normalised ratio abnormal [None]
  - Vomiting [None]

NARRATIVE: CASE EVENT DATE: 20170530
